FAERS Safety Report 6522294-9 (Version None)
Quarter: 2009Q4

REPORT INFORMATION
  Report Type: 
  Country: None (occurrence: None)
  Receive Date: 20091230
  Receipt Date: 20091222
  Transmission Date: 20100525
  Serious: Yes (Congenital Anomaly)
  Sender: FDA-Public Use
  Company Number: A0836766A

PATIENT
  Sex: Male
  Weight: 3 kg

DRUGS (5)
  1. PAXIL [Suspect]
  2. ALCOHOL [Suspect]
  3. ELAVIL [Concomitant]
  4. TOBACCO [Concomitant]
  5. TYLENOL W/ CODEINE NO. 3 [Concomitant]

REACTIONS (22)
  - ACROCHORDON [None]
  - ATTENTION DEFICIT/HYPERACTIVITY DISORDER [None]
  - COGNITIVE DISORDER [None]
  - COMPLEX PARTIAL SEIZURES [None]
  - DEVELOPMENTAL DELAY [None]
  - DRUG EXPOSURE DURING PREGNANCY [None]
  - DYSMORPHISM [None]
  - EDUCATIONAL PROBLEM [None]
  - ENCEPHALOPATHY [None]
  - EPILEPSY [None]
  - EXPRESSIVE LANGUAGE DISORDER [None]
  - FEBRILE CONVULSION [None]
  - FINE MOTOR DELAY [None]
  - FOETAL ALCOHOL SYNDROME [None]
  - FONTANELLE DEPRESSED [None]
  - GENERALISED ANXIETY DISORDER [None]
  - HEADACHE [None]
  - KIDNEY SMALL [None]
  - LEARNING DISORDER [None]
  - MATERNAL DRUGS AFFECTING FOETUS [None]
  - MEMORY IMPAIRMENT [None]
  - MILD MENTAL RETARDATION [None]
